FAERS Safety Report 6217207-3 (Version None)
Quarter: 2009Q2

REPORT INFORMATION
  Report Type: 
  Country: None (occurrence: None)
  Receive Date: 20090608
  Receipt Date: 20090602
  Transmission Date: 20091009
  Serious: Yes (Death)
  Sender: FDA-Public Use
  Company Number: US-CELGENEUS-163-21880-09051212

PATIENT
  Sex: Male

DRUGS (4)
  1. REVLIMID [Suspect]
     Route: 048
     Dates: start: 20090301
  2. REVLIMID [Suspect]
     Route: 048
     Dates: start: 20071101, end: 20071201
  3. REVLIMID [Suspect]
     Route: 048
     Dates: start: 20080201, end: 20080701
  4. REVLIMID [Suspect]
     Route: 048
     Dates: start: 20080701, end: 20090101

REACTIONS (4)
  - BRONCHITIS [None]
  - DEATH [None]
  - DRUG INEFFECTIVE [None]
  - PNEUMONIA [None]
